FAERS Safety Report 6801614-1 (Version None)
Quarter: 2010Q2

REPORT INFORMATION
  Report Type: 
  Country: None (occurrence: None)
  Receive Date: 20100629
  Receipt Date: 20100622
  Transmission Date: 20101027
  Serious: Yes (Other)
  Sender: FDA-Public Use
  Company Number: GB-MERCK-1005GBR00096

PATIENT
  Age: 32 Year
  Sex: Male
  Weight: 84 kg

DRUGS (1)
  1. PROPECIA [Suspect]
     Indication: ALOPECIA
     Route: 048
     Dates: start: 20030101, end: 20100101

REACTIONS (5)
  - BLOOD TESTOSTERONE INCREASED [None]
  - FURUNCLE [None]
  - HERPES SIMPLEX [None]
  - LIBIDO DISORDER [None]
  - OROPHARYNGEAL PAIN [None]
